FAERS Safety Report 16360802 (Version 4)
Quarter: 2024Q3

REPORT INFORMATION
  Report Type: Spontaneous
  Country: PT (occurrence: PT)
  Receive Date: 20190528
  Receipt Date: 20240712
  Transmission Date: 20241017
  Serious: Yes (Death, Life-Threatening, Other)
  Sender: AUROBINDO
  Company Number: PT-AUROBINDO-AUR-APL-2019-028333

PATIENT
  Age: 56 Year
  Sex: Male
  Weight: 85 kg

DRUGS (8)
  1. OXALIPLATIN [Suspect]
     Active Substance: OXALIPLATIN
     Indication: Adenocarcinoma of colon
     Dosage: UNK, 4 CYCLES, EVERY-2 WEEKS
     Route: 042
  2. OXALIPLATIN [Suspect]
     Active Substance: OXALIPLATIN
     Dosage: 85 MILLIGRAM/SQ. METER, CYCLICAL EVERY-2 WEEKS ,4 CYCLE)
     Route: 042
     Dates: start: 20180626
  3. FLUOROURACIL [Suspect]
     Active Substance: FLUOROURACIL
     Indication: Adenocarcinoma of colon
     Dosage: 4 CYCLES, EVERY-2 WEEKS
     Route: 042
  4. FLUOROURACIL [Suspect]
     Active Substance: FLUOROURACIL
     Dosage: 400 MILLIGRAM/SQ. METER (4 CYCLE EVERY 2 WEEKS)
     Route: 040
     Dates: start: 20180626, end: 20180821
  5. FLUOROURACIL [Suspect]
     Active Substance: FLUOROURACIL
     Dosage: 2400 MILLIGRAM/SQ. METER,4 CYCLE (BY INFUSION PUMP IN 48 HOURS, EVERY 2 WEEKS)
     Route: 042
     Dates: start: 20180626
  6. BEVACIZUMAB [Suspect]
     Active Substance: BEVACIZUMAB
     Indication: Adenocarcinoma of colon
     Dosage: 5 MILLIGRAM/KILOGRAM, CYCLICAL (4 CYCLES, EVERY-2 WEEKS)
     Route: 042
     Dates: start: 20180626
  7. LEUCOVORIN [Suspect]
     Active Substance: LEUCOVORIN\LEUCOVORIN CALCIUM
     Indication: Adenocarcinoma of colon
     Dosage: UNK, 4 CYCLES EVERY TWO WEEKS
     Route: 042
  8. LEUCOVORIN CALCIUM [Concomitant]
     Active Substance: LEUCOVORIN CALCIUM
     Indication: Adenocarcinoma of colon
     Dosage: 400 MILLIGRAM/SQ. METER, CYCLICAL 400 MILLIGRAM/SQ. METER (EVERY-2 WEEKS,4 CYCLE)
     Route: 042
     Dates: start: 20180626

REACTIONS (4)
  - Vomiting [Fatal]
  - Myelopathy [Fatal]
  - Toxicity to various agents [Fatal]
  - Device dislocation [Fatal]

NARRATIVE: CASE EVENT DATE: 20180101
